FAERS Safety Report 4342089-4 (Version None)
Quarter: 2004Q1

REPORT INFORMATION
  Report Type: 
  Country: None (occurrence: None)
  Receive Date: 20040329
  Receipt Date: 20040120
  Transmission Date: 20041129
  Serious: No
  Sender: FDA-Public Use
  Company Number: 04P-163-0247810-00

PATIENT
  Age: 75 Year
  Sex: Female
  Weight: 68.9467 kg

DRUGS (20)
  1. HUMIRA [Suspect]
     Indication: RHEUMATOID ARTHRITIS
     Dosage: 40 MG, 1 IN 2 WK, SUBCUTANEOUS
     Route: 058
     Dates: start: 20031001
  2. TEVATIN [Concomitant]
  3. CLONIDINE [Concomitant]
  4. HYDROLAZINE [Concomitant]
  5. LORAZEPAM [Concomitant]
  6. LEVOTHYROXINE SODIUM [Concomitant]
  7. LEXAPRO [Concomitant]
  8. ASPIRIN [Concomitant]
  9. CITRACAL + D [Concomitant]
  10. ZOCOR [Concomitant]
  11. MIRTAZAPINE [Concomitant]
  12. METOPROLOL SUCCINATE [Concomitant]
  13. INSULIN GLARGINE [Concomitant]
  14. INSULIN LISPRO [Concomitant]
  15. RISEDRONATE SODIUM [Concomitant]
  16. SALMETEROL XINAFOATE [Concomitant]
  17. MULTIVITAMIN [Concomitant]
  18. ANTIBIOTIC [Concomitant]
  19. PREDNISONE [Concomitant]
  20. FOLIC ACID [Concomitant]

REACTIONS (12)
  - BACK PAIN [None]
  - CONDITION AGGRAVATED [None]
  - DECREASED APPETITE [None]
  - DYSPNOEA [None]
  - EYE SWELLING [None]
  - FEELING ABNORMAL [None]
  - FEELING HOT [None]
  - FLUSHING [None]
  - NERVOUSNESS [None]
  - OEDEMA PERIPHERAL [None]
  - PARAESTHESIA [None]
  - WEIGHT INCREASED [None]
